FAERS Safety Report 20987085 (Version 1)
Quarter: 2022Q2

REPORT INFORMATION
  Report Type: Spontaneous
  Country: AU (occurrence: AU)
  Receive Date: 20220621
  Receipt Date: 20220621
  Transmission Date: 20220721
  Serious: Yes (Death, Hospitalization, Other)
  Sender: FDA-Public Use
  Company Number: AU-GLAXOSMITHKLINE-AU2022APC095011

PATIENT

DRUGS (8)
  1. SOTROVIMAB [Suspect]
     Active Substance: SOTROVIMAB
     Indication: Product used for unknown indication
     Dosage: UNK
  2. ANAKINRA [Concomitant]
     Active Substance: ANAKINRA
     Indication: Product used for unknown indication
     Dosage: UNK
  3. DEXAMETHASONE [Concomitant]
     Active Substance: DEXAMETHASONE
     Indication: Product used for unknown indication
     Dosage: UNK
  4. ANIDULAFUNGIN [Concomitant]
     Active Substance: ANIDULAFUNGIN
     Indication: Product used for unknown indication
     Dosage: UNK
  5. POSACONAZOLE [Concomitant]
     Active Substance: POSACONAZOLE
     Indication: Product used for unknown indication
     Dosage: UNK
  6. VANCOMYCIN [Concomitant]
     Active Substance: VANCOMYCIN
     Indication: Product used for unknown indication
     Dosage: UNK
  7. MEROPENEM [Concomitant]
     Active Substance: MEROPENEM
     Indication: Product used for unknown indication
     Dosage: UNK
  8. METHYLENE BLUE [Concomitant]
     Active Substance: METHYLENE BLUE
     Indication: Methaemoglobinaemia
     Dosage: UNK

REACTIONS (6)
  - Death [Fatal]
  - General physical health deterioration [Unknown]
  - Pulmonary haemorrhage [Unknown]
  - Hypotension [Unknown]
  - Hyperlactacidaemia [Unknown]
  - Off label use [Unknown]
